FAERS Safety Report 17670492 (Version 2)
Quarter: 2020Q2

REPORT INFORMATION
  Report Type: Spontaneous
  Country: US (occurrence: US)
  Receive Date: 20200415
  Receipt Date: 20200416
  Transmission Date: 20200713
  Serious: Yes (Death, Other)
  Sender: FDA-Public Use
  Company Number: US-PFIZER INC-2020149607

PATIENT
  Sex: Female
  Weight: 3.47 kg

DRUGS (2)
  1. MEPIVACAINE HCL [Suspect]
     Active Substance: MEPIVACAINE HYDROCHLORIDE
     Indication: LOCAL ANAESTHESIA
     Dosage: 3.3 MG/KG, UNK (16 ML OF 1.5 PER CENT MEPIVACAINE (240 MG, OR 3.3 MG PER KG))
     Route: 064
  2. MEPIVACAINE HCL [Suspect]
     Active Substance: MEPIVACAINE HYDROCHLORIDE
     Indication: PAIN

REACTIONS (6)
  - Analgesic drug level increased [Unknown]
  - Apgar score low [Unknown]
  - Lethargy [Unknown]
  - Foetal exposure during delivery [Fatal]
  - Neonatal seizure [Fatal]
  - Bradycardia foetal [Fatal]
